FAERS Safety Report 10306181 (Version 1)
Quarter: 2014Q3

REPORT INFORMATION
  Report Type: Spontaneous
  Country: US (occurrence: None)
  Receive Date: 20140711
  Receipt Date: 20140711
  Transmission Date: 20150326
  Serious: Yes (Hospitalization)
  Sender: FDA-Public Use
  Company Number: US-H14001-14-00189

PATIENT
  Age: 46 Year
  Sex: Male

DRUGS (8)
  1. CYCLOBENZAPRINE(CYCLOBENZAPRINE)(UNKNOWN)(CYCLOBENZAPRINE) [Concomitant]
  2. VANCOMYCIN (VANCOMYCIN) (UNKNOWN) (VANCOMYCIN) [Concomitant]
  3. DEXAMETHASONE (DEXAMETHASONE) (UNKNOWN) (DEXAMETHASONE) [Concomitant]
  4. ACETAMINOPHEN AND HYDROCODONE (PROCET /01554201/)(UNKNOWN)(PARACETAMOL, HYDROCODONE) [Concomitant]
  5. CEFTRIAXONE (CEFTRIAXONE) (UNKNOWN) (CEFTRIAXONE) [Concomitant]
  6. PREDNISONE. [Suspect]
     Active Substance: PREDNISONE
     Indication: BACK PAIN
     Route: 048
  7. ACYCLOVIR (ACICLOVIR) (UNKNOWN) (ACICLOVIR) [Concomitant]
  8. METHOCARBAMOL (METHOCARBAMOL) (UNKNOWN) (METHOCARBAMOL) [Concomitant]

REACTIONS (5)
  - Blood pressure decreased [None]
  - Brain oedema [None]
  - Coma [None]
  - Cerebral artery thrombosis [None]
  - Body temperature increased [None]
